FAERS Safety Report 25965055 (Version 1)
Quarter: 2025Q4

REPORT INFORMATION
  Report Type: Spontaneous
  Country: EU (occurrence: EU)
  Receive Date: 20251027
  Receipt Date: 20251027
  Transmission Date: 20260117
  Serious: Yes (Other)
  Sender: ELI LILLY AND COMPANY
  Company Number: None

PATIENT
  Age: 77 Year
  Sex: Female
  Weight: 70 kg

DRUGS (1)
  1. ABEMACICLIB [Suspect]
     Active Substance: ABEMACICLIB
     Indication: Breast cancer stage II
     Dosage: 150 MG, BID
     Route: 048
     Dates: start: 20250804, end: 20250901

REACTIONS (1)
  - Overflow diarrhoea [Recovered/Resolved]

NARRATIVE: CASE EVENT DATE: 20250826
